FAERS Safety Report 5962056-4 (Version None)
Quarter: 2008Q4

REPORT INFORMATION
  Report Type: 
  Country: None (occurrence: None)
  Receive Date: 20081121
  Receipt Date: 20081113
  Transmission Date: 20090506
  Serious: Yes (Death)
  Sender: FDA-Public Use
  Company Number: GB-BRACCO-000131

PATIENT
  Sex: Female

DRUGS (1)
  1. NIOPAM [Suspect]
     Indication: COMPUTERISED TOMOGRAM
     Route: 042
     Dates: start: 20080922, end: 20080922

REACTIONS (1)
  - RESPIRATORY ARREST [None]
